FAERS Safety Report 8844748 (Version 1)
Quarter: 2012Q4

REPORT INFORMATION
  Report Type: 
  Country: US (occurrence: US)
  Receive Date: 20121017
  Receipt Date: 20121017
  Transmission Date: 20130627
  Serious: Yes (Other)
  Sender: FDA-Public Use
  Company Number: PHEH2012US020147

PATIENT
  Sex: Male

DRUGS (6)
  1. VIVELLE DOT [Suspect]
     Indication: HYSTERECTOMY
     Dosage: 0.1 mg, QW2
     Route: 062
  2. FIORICET [Concomitant]
  3. FLEXERIL [Concomitant]
  4. ATIVAN [Concomitant]
  5. ROXICODONE [Concomitant]
  6. GABITOL [Concomitant]

REACTIONS (3)
  - Road traffic accident [Unknown]
  - Wrong technique in drug usage process [Unknown]
  - Product adhesion issue [Unknown]
